FAERS Safety Report 7000195-X (Version None)
Quarter: 2010Q3

REPORT INFORMATION
  Report Type: 
  Country: None (occurrence: None)
  Receive Date: 20100920
  Receipt Date: 20100104
  Transmission Date: 20110219
  Serious: Yes (Other)
  Sender: FDA-Public Use
  Company Number: US-ASTRAZENECA-2010SE00110

PATIENT
  Age: 16 Year
  Sex: Female

DRUGS (8)
  1. SEROQUEL XR [Suspect]
     Indication: BIPOLAR DISORDER
     Route: 048
     Dates: start: 20091101, end: 20091225
  2. SEROQUEL XR [Suspect]
     Indication: SCHIZOPHRENIA
     Route: 048
     Dates: start: 20091101, end: 20091225
  3. SEROQUEL XR [Suspect]
     Route: 048
     Dates: start: 20091228
  4. SEROQUEL XR [Suspect]
     Route: 048
     Dates: start: 20091228
  5. LAMICTAL [Concomitant]
  6. BIRTH CONTROL [Concomitant]
  7. PEPCID [Concomitant]
     Dosage: PRN
  8. ADVIL LIQUI-GELS [Concomitant]
     Dosage: PRN

REACTIONS (4)
  - AGGRESSION [None]
  - INSOMNIA [None]
  - PARANOIA [None]
  - SUICIDAL IDEATION [None]
